FAERS Safety Report 5022296-8 (Version None)
Quarter: 2006Q2

REPORT INFORMATION
  Report Type: 
  Country: None (occurrence: None)
  Receive Date: 20060609
  Receipt Date: 20060602
  Transmission Date: 20061013
  Serious: Yes (Hospitalization)
  Sender: FDA-Public Use
  Company Number: FR-GLAXOSMITHKLINE-B0426234A

PATIENT
  Age: 30 Year
  Sex: Male

DRUGS (1)
  1. ESKAZOLE [Suspect]
     Indication: HEPATIC ECHINOCOCCIASIS
     Dosage: 200MG FOUR TIMES PER DAY
     Route: 048
     Dates: start: 20051206, end: 20060203

REACTIONS (1)
  - HEPATITIS TOXIC [None]
